FAERS Safety Report 7864865-3 (Version None)
Quarter: 2011Q4

REPORT INFORMATION
  Report Type: 
  Country: None (occurrence: None)
  Receive Date: 20111028
  Receipt Date: 20100908
  Transmission Date: 20120403
  Serious: No
  Sender: FDA-Public Use
  Company Number: US-GLAXOSMITHKLINE-A0880289A

PATIENT
  Age: 72 Year
  Sex: Female

DRUGS (10)
  1. HYLAND'S CALMS FORTE [Concomitant]
     Indication: MUSCLE SPASMS
  2. ALEVE [Suspect]
  3. GLUCOSAMINE [Concomitant]
  4. IBUPROFEN [Concomitant]
     Indication: ARTHRITIS
  5. VITAMIN TAB [Concomitant]
  6. DILACOR XR [Concomitant]
     Indication: BLOOD PRESSURE
  7. VENTOLIN [Concomitant]
     Indication: ASTHMA
  8. CALCIUM CARBONATE [Concomitant]
  9. ADVAIR DISKUS 100/50 [Suspect]
     Indication: ASTHMA
     Dosage: 1PUFF TWICE PER DAY
     Route: 055
  10. DILTIAZEM CD [Concomitant]

REACTIONS (7)
  - PRURITUS [None]
  - PARAESTHESIA [None]
  - PERFUME SENSITIVITY [None]
  - DRUG ADMINISTRATION ERROR [None]
  - RASH [None]
  - DERMATITIS ALLERGIC [None]
  - DYSPHONIA [None]
